FAERS Safety Report 5356787-7 (Version None)
Quarter: 2007Q2

REPORT INFORMATION
  Report Type: 
  Country: None (occurrence: None)
  Receive Date: 20070614
  Receipt Date: 20070302
  Transmission Date: 20071010
  Serious: No
  Sender: FDA-Public Use
  Company Number: US-ASTRAZENECA-2007UW04003

PATIENT
  Age: 61 Year
  Sex: Female

DRUGS (5)
  1. ATACAND [Suspect]
  2. LAMICTAL [Interacting]
     Indication: BIPOLAR DISORDER
     Dates: start: 20061128, end: 20061201
  3. ALBUTEROL SULFATE [Concomitant]
  4. EXTRA STRENGTH TYLENOL [Concomitant]
  5. VENLAFAXIINE HCL [Concomitant]
     Dates: start: 20061128

REACTIONS (3)
  - BLOOD PRESSURE INCREASED [None]
  - DRUG INTERACTION [None]
  - HEADACHE [None]
